FAERS Safety Report 8702678 (Version 4)
Quarter: 2014Q1

REPORT INFORMATION
  Report Type: Report from Study
  Country: US (occurrence: US)
  Receive Date: 20120803
  Receipt Date: 20140219
  Transmission Date: 20141002
  Serious: Yes (Hospitalization, Other)
  Sender: FDA-Public Use
  Company Number: US-ALEXION-A201201433

PATIENT
  Age: 4 Year
  Sex: Male
  Weight: 17.6 kg

DRUGS (16)
  1. SOLIRIS [Suspect]
     Indication: HAEMOLYTIC URAEMIC SYNDROME
     Dosage: 300 MG, QW
     Route: 042
     Dates: start: 20120722
  2. SOLIRIS [Suspect]
     Dosage: 600 MG, SINGLE
     Dates: start: 20120715, end: 20120715
  3. ALLOPURINOL [Concomitant]
     Dosage: 26 MG, QD
     Route: 051
  4. AMLODIPINE [Concomitant]
     Dosage: 1.5 ML, BID
     Route: 051
  5. CALCITRIOL [Concomitant]
     Dosage: 0.2 MCG BID
     Route: 051
  6. PREVACID [Concomitant]
     Dosage: 15 MG, BID
     Route: 051
  7. MIRALAX [Concomitant]
     Dosage: 0.5 DF, QOD
     Route: 051
  8. VITAMIN D NOS [Concomitant]
     Dosage: 400 UT, QD
     Route: 051
  9. SODIUM CHLORIDE [Concomitant]
     Dosage: 100 MEQ, QD
     Route: 051
  10. IRON [Concomitant]
     Dosage: 1.5 ML, BID
     Route: 051
  11. KAYEXALATE [Concomitant]
     Dosage: 2 TSP, UNK
     Route: 051
  12. ZOFRAN [Concomitant]
     Indication: NAUSEA
     Dosage: 4 MG, PRN
     Route: 051
  13. ZOFRAN [Concomitant]
     Indication: VOMITING
  14. BENADRYL [Concomitant]
     Indication: HYPERSENSITIVITY
     Dosage: UNK, PRN
  15. COENZYME Q10 [Concomitant]
     Dosage: 0.5 DF, QD
     Route: 051
  16. VITAMIN B COMPLEX [Concomitant]
     Dosage: 0.5 DF, QD
     Route: 051

REACTIONS (2)
  - Catheter site infection [Recovering/Resolving]
  - Thrombotic microangiopathy [Unknown]
